FAERS Safety Report 20436309 (Version 1)
Quarter: 2022Q1

REPORT INFORMATION
  Report Type: Spontaneous
  Country: US (occurrence: US)
  Receive Date: 20220207
  Receipt Date: 20220207
  Transmission Date: 20220424
  Serious: Yes (Other)
  Sender: FDA-Public Use
  Company Number: US-MLMSERVICE-20220121-3333206-1

PATIENT

DRUGS (14)
  1. SERTRALINE [Suspect]
     Active Substance: SERTRALINE HYDROCHLORIDE
     Indication: Schizophrenia
     Dosage: SERTRALINE WAS ADDED AND TITRATED UP TO 75MG PO DAILY
     Route: 048
  2. SERTRALINE [Suspect]
     Active Substance: SERTRALINE HYDROCHLORIDE
     Dosage: 50 MILLIGRAM, BID
     Route: 048
  3. CLOZAPINE [Suspect]
     Active Substance: CLOZAPINE
     Indication: Schizophrenia
     Dosage: 12.5 MILLIGRAM, BEDTIME
     Route: 065
  4. CLOZAPINE [Suspect]
     Active Substance: CLOZAPINE
     Dosage: GRADUALLY TITRATED UP TO 300 MG AT BEDTIME (QHS)
     Route: 065
  5. CLOZAPINE [Suspect]
     Active Substance: CLOZAPINE
     Dosage: 300 MILLIGRAM, QD (AT BEDTIME)
     Route: 065
  6. ATOMOXETINE [Suspect]
     Active Substance: ATOMOXETINE
     Indication: Disturbance in attention
     Dosage: 10 MILLIGRAM, DAILY
     Route: 048
  7. ACETYLCYSTEINE [Concomitant]
     Active Substance: ACETYLCYSTEINE
     Indication: Schizophrenia
     Dosage: 600 MILLIGRAM, QD
     Route: 048
  8. ACETYLCYSTEINE [Concomitant]
     Active Substance: ACETYLCYSTEINE
     Dosage: UNK, TID, GRADUALLY TITRATED UP TO 600 MG THREE TIMES A DAY
     Route: 048
  9. ACETYLCYSTEINE [Concomitant]
     Active Substance: ACETYLCYSTEINE
     Dosage: UNK, TID, GRADUALLY TITRATED UP TO 600 MG THREE TIMES A DAY
     Route: 048
  10. RISPERIDONE [Concomitant]
     Active Substance: RISPERIDONE
     Indication: Schizophrenia
     Dosage: 2 MILLIGRAM, QD
     Route: 048
  11. RISPERIDONE [Concomitant]
     Active Substance: RISPERIDONE
     Dosage: 2 MILLIGRAM PO AND TITRATED UP TO 75MG PO DAILY
     Route: 048
  12. RISPERIDONE [Concomitant]
     Active Substance: RISPERIDONE
     Dosage: 0.5 MILLIGRAM AS NECESSARY
     Route: 048
  13. RISPERIDONE [Concomitant]
     Active Substance: RISPERIDONE
     Dosage: 3 MILLIGRAM, BID
     Route: 048
  14. BENZTROPINE [Concomitant]
     Active Substance: BENZTROPINE
     Indication: Extrapyramidal disorder
     Dosage: 1 MILLIGRAM DAILY
     Route: 048

REACTIONS (2)
  - Psychotic disorder [Recovered/Resolved]
  - Sedation [Recovered/Resolved]
